FAERS Safety Report 6370907-7 (Version None)
Quarter: 2009Q3

REPORT INFORMATION
  Report Type: 
  Country: None (occurrence: None)
  Receive Date: 20090923
  Receipt Date: 20070508
  Transmission Date: 20100115
  Serious: Yes (Other)
  Sender: FDA-Public Use
  Company Number: US-ASTRAZENECA-2006UW22925

PATIENT
  Age: 39 Year
  Sex: Female
  Weight: 124.7 kg

DRUGS (22)
  1. SEROQUEL [Suspect]
     Indication: INSOMNIA
     Dosage: 25 - 200 MG
     Route: 048
     Dates: start: 20011105
  2. SEROQUEL [Suspect]
     Indication: DEPRESSION
     Dosage: 25 - 200 MG
     Route: 048
     Dates: start: 20011105
  3. SEROQUEL [Suspect]
     Indication: SLEEP DISORDER
     Dosage: 25 - 200 MG
     Route: 048
     Dates: start: 20011105
  4. SEROQUEL [Suspect]
     Dosage: 100 MG AND 200 MG
     Route: 048
     Dates: start: 20030101
  5. SEROQUEL [Suspect]
     Dosage: 100 MG AND 200 MG
     Route: 048
     Dates: start: 20030101
  6. SEROQUEL [Suspect]
     Dosage: 100 MG AND 200 MG
     Route: 048
     Dates: start: 20030101
  7. ZYPREXA [Concomitant]
     Dosage: 15 - 20 MG
     Route: 048
     Dates: start: 20030305
  8. DEPAKOTE [Concomitant]
     Dosage: 1000 - 1500 MG
     Route: 048
     Dates: start: 20030305
  9. VISTARIL [Concomitant]
     Route: 048
     Dates: start: 20020801
  10. ABILIFY [Concomitant]
     Route: 048
     Dates: start: 20031104
  11. CLONIDINE [Concomitant]
     Route: 048
     Dates: start: 20031104
  12. RISPERDAL [Concomitant]
     Dosage: 1 - 2 MG
     Route: 048
     Dates: start: 20030916
  13. EFFEXOR [Concomitant]
     Dosage: 37.5 - 75 MG
     Route: 048
     Dates: start: 20011105
  14. FLOVENT [Concomitant]
     Dosage: 2 PUFFS, 4 TIMES IN A DAY
     Route: 045
     Dates: start: 20010623
  15. ALBUTEROL [Concomitant]
     Dosage: 2 PUFFS, EVERY 4 HOURS
     Route: 045
     Dates: start: 20010623
  16. PRILOSEC [Concomitant]
     Route: 048
     Dates: start: 20031104
  17. CELEXA [Concomitant]
     Dosage: 20 - 30 MG
     Route: 048
     Dates: start: 20021126
  18. LEXAPRO [Concomitant]
     Route: 048
     Dates: start: 20060921
  19. METFORMIN HCL [Concomitant]
     Route: 048
     Dates: start: 20060812
  20. LANTUS [Concomitant]
     Dosage: 55 - 85 UNITS
     Route: 058
     Dates: start: 20060921
  21. NOVOLOG [Concomitant]
     Dosage: 2 TO 4 UNITS AS REQUIRED
     Route: 058
     Dates: start: 20060921
  22. ZOLOFT [Concomitant]
     Dosage: 25 - 50 MG
     Route: 048
     Dates: start: 20030916

REACTIONS (4)
  - DIABETES MELLITUS [None]
  - DIABETIC KETOACIDOSIS [None]
  - TYPE 1 DIABETES MELLITUS [None]
  - TYPE 2 DIABETES MELLITUS [None]
